FAERS Safety Report 8070323-6 (Version None)
Quarter: 2012Q1

REPORT INFORMATION
  Report Type: 
  Country: None (occurrence: None)
  Receive Date: 20120125
  Receipt Date: 20120120
  Transmission Date: 20120608
  Serious: Yes (Hospitalization, Other)
  Sender: FDA-Public Use
  Company Number: US-PFIZER INC-2012017257

PATIENT
  Sex: Female
  Weight: 77.098 kg

DRUGS (3)
  1. LYRICA [Suspect]
     Indication: FIBROMYALGIA
     Dosage: UNK
  2. METOPROLOL TARTRATE [Concomitant]
     Indication: HYPERTENSION
     Dosage: 100 MG, DAILY
  3. CYMBALTA [Suspect]
     Dosage: 60 MG, 2X/DAY
     Dates: end: 20111201

REACTIONS (1)
  - CEREBROVASCULAR ACCIDENT [None]
